FAERS Safety Report 8488128-0 (Version None)
Quarter: 2012Q3

REPORT INFORMATION
  Report Type: 
  Country: None (occurrence: None)
  Receive Date: 20120705
  Receipt Date: 20120625
  Transmission Date: 20120928
  Serious: Yes (Hospitalization, Other)
  Sender: FDA-Public Use
  Company Number: US-BAYER-200938761NA

PATIENT
  Age: 36 Year
  Sex: Female
  Weight: 65 kg

DRUGS (6)
  1. NAPROSYN [Concomitant]
     Dosage: 500 MG, UNK
     Route: 048
     Dates: start: 20080119
  2. ASPIRIN [Concomitant]
     Dosage: 650 MG, UNK
     Route: 048
     Dates: start: 20080419
  3. YASMIN [Suspect]
     Indication: POLYCYSTIC OVARIES
     Dates: start: 20070801, end: 20080401
  4. YAZ [Suspect]
     Indication: POLYCYSTIC OVARIES
  5. FLEXERIL [Concomitant]
     Dosage: 10 MG, UNK
     Route: 048
     Dates: start: 20080119
  6. CELEBREX [Concomitant]
     Dosage: 200 MG, UNK
     Route: 048
     Dates: start: 20080101

REACTIONS (6)
  - CHEST PAIN [None]
  - ARTHRALGIA [None]
  - DYSPNOEA [None]
  - INJURY [None]
  - DEEP VEIN THROMBOSIS [None]
  - PULMONARY EMBOLISM [None]
